FAERS Safety Report 7706841-7 (Version None)
Quarter: 2011Q3

REPORT INFORMATION
  Report Type: 
  Country: None (occurrence: None)
  Receive Date: 20110824
  Receipt Date: 20110810
  Transmission Date: 20111222
  Serious: Yes (Hospitalization)
  Sender: FDA-Public Use
  Company Number: US-GLAXOSMITHKLINE-A0834431A

PATIENT
  Age: 48 Year
  Sex: Male
  Weight: 120.5 kg

DRUGS (8)
  1. ALTACE [Concomitant]
  2. AVANDIA [Suspect]
     Indication: DIABETES MELLITUS
     Dosage: 2MG TWICE PER DAY
     Route: 048
     Dates: start: 19990501, end: 20071201
  3. ZOLOFT [Concomitant]
  4. AVANDAMET [Suspect]
     Indication: DIABETES MELLITUS
     Route: 048
  5. MERIDIA [Concomitant]
  6. ACTOS [Concomitant]
  7. ACIPHEX [Concomitant]
  8. VYTORIN [Concomitant]

REACTIONS (2)
  - CORONARY ARTERY OCCLUSION [None]
  - CORONARY ARTERY DISEASE [None]
